FAERS Safety Report 9259179 (Version 1)
Quarter: 2013Q2

REPORT INFORMATION
  Report Type: Spontaneous
  Country: US (occurrence: US)
  Receive Date: 20130426
  Receipt Date: 20130426
  Transmission Date: 20140414
  Serious: Yes (Other)
  Sender: FDA-Public Use
  Company Number: US-ABBOTT-13X-163-1080620-00

PATIENT
  Sex: 0

DRUGS (2)
  1. TERAZOSIN [Suspect]
     Indication: PREOPERATIVE CARE
  2. TERAZOSIN [Suspect]

REACTIONS (1)
  - Orthostatic hypotension [Recovered/Resolved]
